FAERS Safety Report 4701903-0 (Version None)
Quarter: 2005Q2

REPORT INFORMATION
  Report Type: 
  Country: None (occurrence: None)
  Receive Date: 20050627
  Receipt Date: 20050614
  Transmission Date: 20051028
  Serious: Yes (Other)
  Sender: FDA-Public Use
  Company Number: 2004244052US

PATIENT
  Age: 42 Year
  Sex: Female
  Weight: 81.6475 kg

DRUGS (4)
  1. BEXTRA [Suspect]
     Indication: ARTHRALGIA
  2. ALBUTEROL [Suspect]
     Indication: ASTHMA
     Dosage: INHALATION
     Route: 055
  3. SEROQUEL [Suspect]
     Indication: ILL-DEFINED DISORDER
  4. CORTISONE ACETATE [Suspect]
     Indication: ARTHRALGIA

REACTIONS (17)
  - ACCIDENTAL EXPOSURE [None]
  - APATHY [None]
  - ARTHRALGIA [None]
  - BALANCE DISORDER [None]
  - COORDINATION ABNORMAL [None]
  - DIZZINESS [None]
  - FALL [None]
  - FEAR [None]
  - FEELING ABNORMAL [None]
  - HEART RATE INCREASED [None]
  - LOSS OF CONTROL OF LEGS [None]
  - MEDICATION ERROR [None]
  - MEMORY IMPAIRMENT [None]
  - PNEUMONIA [None]
  - PNEUMONIA PRIMARY ATYPICAL [None]
  - POLYDIPSIA [None]
  - THROAT TIGHTNESS [None]
